FAERS Safety Report 7919112-0 (Version None)
Quarter: 2011Q4

REPORT INFORMATION
  Report Type: 
  Country: None (occurrence: None)
  Receive Date: 20111116
  Receipt Date: 20111017
  Transmission Date: 20120403
  Serious: Yes (Death)
  Sender: FDA-Public Use
  Company Number: JP-NOVOPROD-336592

PATIENT

DRUGS (2)
  1. DOPAMINE HCL [Concomitant]
     Dosage: UNK
     Dates: start: 20110901, end: 20110929
  2. NOVOSEVEN [Suspect]
     Indication: HAEMOSTASIS
     Dosage: 84-42 MG, QD
     Route: 042
     Dates: start: 20110921, end: 20110929

REACTIONS (1)
  - POST PROCEDURAL INFECTION [None]
